FAERS Safety Report 5903066-2 (Version None)
Quarter: 2008Q3

REPORT INFORMATION
  Report Type: 
  Country: None (occurrence: None)
  Receive Date: 20080930
  Receipt Date: 20080920
  Transmission Date: 20090109
  Serious: Yes (Other)
  Sender: FDA-Public Use
  Company Number: US-ROCHE-587394

PATIENT
  Sex: Female
  Weight: 106.1 kg

DRUGS (4)
  1. CAPECITABINE [Suspect]
     Indication: BREAST CANCER
     Route: 048
  2. INSULIN [Concomitant]
  3. PREVACID [Concomitant]
  4. TOPROL-XL [Concomitant]

REACTIONS (1)
  - DISEASE PROGRESSION [None]
